FAERS Safety Report 7913404-7 (Version None)
Quarter: 2011Q4

REPORT INFORMATION
  Report Type: 
  Country: None (occurrence: None)
  Receive Date: 20111115
  Receipt Date: 20111109
  Transmission Date: 20120403
  Serious: Yes (Hospitalization, Other)
  Sender: FDA-Public Use
  Company Number: US-BIOGENIDEC-2011BI019101

PATIENT
  Age: 62 Year
  Sex: Female

DRUGS (2)
  1. AVONEX [Suspect]
     Indication: MULTIPLE SCLEROSIS
     Route: 030
     Dates: start: 20040318
  2. AVONEX [Suspect]
     Route: 030

REACTIONS (7)
  - MYOCARDIAL INFARCTION [None]
  - FEELING HOT [None]
  - ARTERIAL OCCLUSIVE DISEASE [None]
  - DYSPNOEA [None]
  - THROMBOSIS [None]
  - HYPERHIDROSIS [None]
  - CEREBROVASCULAR ACCIDENT [None]
